FAERS Safety Report 5715135-0 (Version None)
Quarter: 2008Q2

REPORT INFORMATION
  Report Type: 
  Country: None (occurrence: None)
  Receive Date: 20080423
  Receipt Date: 20080327
  Transmission Date: 20081010
  Serious: No
  Sender: FDA-Public Use
  Company Number: US-BOEHRINGER INGELHEIM GMBH, GERMANY-2008-BP-04895BP

PATIENT
  Sex: Female

DRUGS (16)
  1. SPIRIVA [Suspect]
     Indication: EMPHYSEMA
     Dates: start: 20070101
  2. SPIRIVA [Suspect]
     Indication: DYSPNOEA
  3. SPIRIVA [Suspect]
     Indication: SLEEP APNOEA SYNDROME
  4. ALBUTEROL [Concomitant]
  5. SEROQUEL [Concomitant]
  6. OXYCONTIN [Concomitant]
  7. OXYCODONE HCL [Concomitant]
  8. NASONEX [Concomitant]
  9. VITAMIN D [Concomitant]
  10. SYNTHROID [Concomitant]
  11. ATIVAN [Concomitant]
  12. CELEXA [Concomitant]
  13. ATENOLOL [Concomitant]
  14. COMPAZINE [Concomitant]
  15. LEVSIL [Concomitant]
  16. SOMA [Concomitant]

REACTIONS (1)
  - URINARY RETENTION [None]
